FAERS Safety Report 20429700 (Version 1)
Quarter: 2022Q1

REPORT INFORMATION
  Report Type: Report from Study
  Country: FR (occurrence: FR)
  Receive Date: 20220204
  Receipt Date: 20220204
  Transmission Date: 20220423
  Serious: Yes (Hospitalization)
  Sender: FDA-Public Use
  Company Number: FR-SERVIER-S19009443

PATIENT

DRUGS (17)
  1. PEGASPARGASE [Suspect]
     Active Substance: PEGASPARGASE
     Indication: Acute lymphocytic leukaemia
     Dosage: 1800 IU  D15, D43
     Route: 042
     Dates: start: 20190723, end: 20190820
  2. METHOTREXATE [Suspect]
     Active Substance: METHOTREXATE
     Indication: Acute lymphocytic leukaemia
     Dosage: 12 MG, ON D3-D31
     Route: 037
     Dates: start: 20190711, end: 20190808
  3. CYTARABINE [Suspect]
     Active Substance: CYTARABINE
     Indication: Acute lymphocytic leukaemia
     Dosage: 30 MG, ON D3-D31
     Route: 037
     Dates: start: 20190711, end: 20190808
  4. CYTARABINE [Suspect]
     Active Substance: CYTARABINE
     Dosage: 55 MG , D1 TO D6-D10 TO D13-D31
     Route: 042
     Dates: start: 20190711, end: 20190818
  5. HYDROCORTISONE [Suspect]
     Active Substance: HYDROCORTISONE
     Indication: Acute lymphocytic leukaemia
     Dosage: 15 MG, ON D3-D31
     Route: 037
     Dates: start: 20190711, end: 20190808
  6. VINCRISTINE [Suspect]
     Active Substance: VINCRISTINE
     Indication: Acute lymphocytic leukaemia
     Dosage: 1.1 MG, ON D15, D22, D43
     Route: 042
     Dates: start: 20190723
  7. CYCLOPHOSPHAMIDE [Suspect]
     Active Substance: CYCLOPHOSPHAMIDE
     Indication: Acute lymphocytic leukaemia
     Dosage: 720 MG, D1, D29
     Route: 042
     Dates: start: 20190709, end: 20190806
  8. MERCAPTOPURINE [Suspect]
     Active Substance: MERCAPTOPURINE
     Indication: Acute lymphocytic leukaemia
     Dosage: 560 MG, ON D1 TO D14-D29 TO D42
     Route: 048
     Dates: start: 20190709, end: 20190819
  9. TN  UNSPECIFIED [Concomitant]
     Indication: Pyrexia
     Dosage: 1 G
     Route: 048
     Dates: start: 20190517
  10. TN  UNSPECIFIED [Concomitant]
     Indication: Pain
     Dosage: 1 G
     Route: 042
     Dates: start: 20190517
  11. ONDANSETRON [Concomitant]
     Active Substance: ONDANSETRON
     Indication: Nausea
     Dosage: 12 MG
     Route: 048
     Dates: start: 20190521
  12. ONDANSETRON [Concomitant]
     Active Substance: ONDANSETRON
     Indication: Vomiting
  13. PHLOROGLUCINOL [Concomitant]
     Active Substance: PHLOROGLUCINOL
     Indication: Abdominal pain
     Dosage: 240 MG, PRN
     Route: 048
     Dates: start: 20190523
  14. ATARAX [Concomitant]
     Active Substance: HYDROXYZINE HYDROCHLORIDE
     Indication: Anxiety
     Dosage: 30 MG, PRN
     Route: 048
     Dates: start: 20190523
  15. MINERAL OIL [Concomitant]
     Active Substance: MINERAL OIL
     Indication: Constipation
     Dosage: 5 ML, PRN
     Route: 048
     Dates: start: 20190525
  16. BACTRIM [Concomitant]
     Active Substance: SULFAMETHOXAZOLE\TRIMETHOPRIM
     Indication: Prophylaxis
     Dosage: 300 MG
     Route: 048
     Dates: start: 20190527
  17. GAVISCON [Concomitant]
     Active Substance: ALUMINUM HYDROXIDE\MAGNESIUM CARBONATE
     Indication: Reflux gastritis
     Dosage: 20 ML
     Route: 048
     Dates: start: 20190616

REACTIONS (1)
  - Staphylococcal sepsis [Recovered/Resolved]

NARRATIVE: CASE EVENT DATE: 20190727
